FAERS Safety Report 13255063 (Version 3)
Quarter: 2017Q1

REPORT INFORMATION
  Report Type: Report from Study
  Country: US (occurrence: US)
  Receive Date: 20170221
  Receipt Date: 20170321
  Transmission Date: 20170428
  Serious: No
  Sender: FDA-Public Use
  Company Number: US-009507513-1702USA002255

PATIENT
  Age: 63 Year
  Sex: Male

DRUGS (16)
  1. PEMBROLIZUMAB. [Suspect]
     Active Substance: PEMBROLIZUMAB
     Dosage: UNK, EVERY THREE WEEKS
     Route: 042
     Dates: start: 20170315
  2. METOPROLOL. [Concomitant]
     Active Substance: METOPROLOL
  3. METFORMIN [Concomitant]
     Active Substance: METFORMIN HYDROCHLORIDE
  4. ASPIRIN. [Concomitant]
     Active Substance: ASPIRIN
     Route: 048
  5. CHONDROITIN SULFATE SODIUM (+) GLUCOSAMINE SULFATE [Concomitant]
  6. HYDROCHLOROTHIAZIDE. [Concomitant]
     Active Substance: HYDROCHLOROTHIAZIDE
  7. LEVOTHYROXINE SODIUM. [Concomitant]
     Active Substance: LEVOTHYROXINE SODIUM
     Route: 048
  8. PEMBROLIZUMAB. [Suspect]
     Active Substance: PEMBROLIZUMAB
     Indication: NON-SMALL CELL LUNG CANCER
     Dosage: UNK, EVERY THREE WEEKS
     Route: 042
     Dates: start: 20170201, end: 20170201
  9. PEMBROLIZUMAB. [Suspect]
     Active Substance: PEMBROLIZUMAB
     Dosage: UNK, EVERY THREE WEEKS
     Route: 042
     Dates: start: 20170222, end: 20170222
  10. LYRICA [Concomitant]
     Active Substance: PREGABALIN
  11. INSULIN [Concomitant]
     Active Substance: INSULIN NOS
  12. NABUMETONE. [Concomitant]
     Active Substance: NABUMETONE
  13. HYDROCODONE [Concomitant]
     Active Substance: HYDROCODONE
  14. ATORVASTATIN [Concomitant]
     Active Substance: ATORVASTATIN
  15. AMLODIPINE [Concomitant]
     Active Substance: AMLODIPINE BESYLATE
  16. CLOPIDOGREL [Concomitant]
     Active Substance: CLOPIDOGREL BISULFATE

REACTIONS (13)
  - Lymphadenopathy [Recovered/Resolved]
  - Pruritus [Not Recovered/Not Resolved]
  - Rubber sensitivity [Unknown]
  - Insomnia [Not Recovered/Not Resolved]
  - Rash [Recovered/Resolved]
  - Infusion site pruritus [Not Recovered/Not Resolved]
  - Nasal pruritus [Not Recovered/Not Resolved]
  - Fatigue [Unknown]
  - Dysgeusia [Unknown]
  - Chills [Recovered/Resolved]
  - Fatigue [Not Recovered/Not Resolved]
  - Dry skin [Unknown]
  - Pruritus [Unknown]

NARRATIVE: CASE EVENT DATE: 2017
